FAERS Safety Report 24164583 (Version 1)
Quarter: 2024Q3

REPORT INFORMATION
  Report Type: Spontaneous
  Country: EU (occurrence: EU)
  Receive Date: 20240801
  Receipt Date: 20240801
  Transmission Date: 20241016
  Serious: Yes (Other)
  Sender: ETHYPHARM
  Company Number: None

PATIENT

DRUGS (8)
  1. BUPRENORPHINE HYDROCHLORIDE [Suspect]
     Active Substance: BUPRENORPHINE HYDROCHLORIDE
     Dosage: 6 COMPRIM?S DE BUPR?NORPHINE 8 MG
     Dates: start: 20240620, end: 20240620
  2. COCAINE [Suspect]
     Active Substance: COCAINE
  3. ALPRAZOLAM [Suspect]
     Active Substance: ALPRAZOLAM
     Dates: start: 20240620, end: 20240620
  4. ZOLPIDEM [Suspect]
     Active Substance: ZOLPIDEM TARTRATE
     Dosage: 28 COMPRIM?S
     Route: 048
     Dates: start: 20240619, end: 20240619
  5. CANNABIS SATIVA SUBSP. INDICA TOP [Suspect]
     Active Substance: CANNABIS SATIVA SUBSP. INDICA TOP
     Route: 055
  6. TRAMADOL HYDROCHLORIDE [Suspect]
     Active Substance: TRAMADOL HYDROCHLORIDE
  7. CYAMEMAZINE [Suspect]
     Active Substance: CYAMEMAZINE
     Dosage: 3 COMPRIM?S DE 25 MG
     Route: 048
     Dates: start: 20240619, end: 20240619
  8. MIDOMAFETAMINE [Suspect]
     Active Substance: MIDOMAFETAMINE

REACTIONS (4)
  - Toxicity to various agents [Unknown]
  - Aggression [Unknown]
  - Drug abuse [Not Recovered/Not Resolved]
  - Overdose [Unknown]

NARRATIVE: CASE EVENT DATE: 20240619
